FAERS Safety Report 13334502 (Version 1)
Quarter: 2017Q1

REPORT INFORMATION
  Report Type: Spontaneous
  Country: US (occurrence: US)
  Receive Date: 20170314
  Receipt Date: 20170314
  Transmission Date: 20170428
  Serious: No
  Sender: FDA-Public Use
  Company Number: US-JNJFOC-20170219849

PATIENT
  Sex: Female

DRUGS (6)
  1. IMBRUVICA [Suspect]
     Active Substance: IBRUTINIB
     Indication: PRODUCT USED FOR UNKNOWN INDICATION
     Route: 048
  2. IMBRUVICA [Suspect]
     Active Substance: IBRUTINIB
     Indication: PRODUCT USED FOR UNKNOWN INDICATION
     Route: 048
     Dates: start: 20141030
  3. LEVOTHYROXINE. [Concomitant]
     Active Substance: LEVOTHYROXINE
  4. ACYCLOVIR. [Concomitant]
     Active Substance: ACYCLOVIR
  5. ASPIRIN. [Concomitant]
     Active Substance: ASPIRIN
  6. SENNA ALEXANDRINA EXTRACT [Concomitant]

REACTIONS (2)
  - Incorrect dosage administered [Unknown]
  - Off label use [Unknown]
